FAERS Safety Report 23919501 (Version 1)
Quarter: 2024Q2

REPORT INFORMATION
  Report Type: Spontaneous
  Country: US (occurrence: US)
  Receive Date: 20240530
  Receipt Date: 20240530
  Transmission Date: 20240716
  Serious: No
  Sender: FDA-Public Use
  Company Number: US-BIOGEN-2024BI01259300

PATIENT
  Age: 69 Year
  Sex: Female

DRUGS (2)
  1. TYSABRI [Suspect]
     Active Substance: NATALIZUMAB
     Indication: Multiple sclerosis
     Route: 050
     Dates: start: 20240520
  2. TYSABRI [Suspect]
     Active Substance: NATALIZUMAB
     Route: 050
     Dates: start: 20100407, end: 20170731

REACTIONS (4)
  - Pulmonary function test decreased [Unknown]
  - Decreased immune responsiveness [Unknown]
  - Illness [Unknown]
  - Pneumonia [Unknown]

NARRATIVE: CASE EVENT DATE: 20240101
